FAERS Safety Report 15426520 (Version 1)
Quarter: 2018Q3

REPORT INFORMATION
  Report Type: Spontaneous
  Country: JP (occurrence: JP)
  Receive Date: 20180925
  Receipt Date: 20180925
  Transmission Date: 20181010
  Serious: Yes (Other)
  Sender: FDA-Public Use
  Company Number: JP-009507513-1809JPN002338J

PATIENT
  Age: 80 Year
  Sex: Male

DRUGS (1)
  1. STROMECTOL [Suspect]
     Active Substance: IVERMECTIN
     Indication: ACARODERMATITIS
     Route: 048

REACTIONS (4)
  - Pyrexia [Unknown]
  - Platelet count decreased [Unknown]
  - Pneumonia [Unknown]
  - Eosinophil count increased [Unknown]
